FAERS Safety Report 7852586-2 (Version None)
Quarter: 2011Q4

REPORT INFORMATION
  Report Type: 
  Country: None (occurrence: None)
  Receive Date: 20111026
  Receipt Date: 20110307
  Transmission Date: 20120403
  Serious: Yes (Hospitalization)
  Sender: FDA-Public Use
  Company Number: US-GLAXOSMITHKLINE-A0917657A

PATIENT
  Age: 52 Year
  Sex: Female

DRUGS (2)
  1. AVANDIA [Suspect]
     Indication: DIABETES MELLITUS
     Dosage: 4MG TWICE PER DAY
     Route: 048
     Dates: start: 20050322, end: 20061220
  2. AVANDAMET [Suspect]
     Indication: DIABETES MELLITUS
     Dates: start: 20070102, end: 20100320

REACTIONS (2)
  - STENT PLACEMENT [None]
  - ARTERIAL OCCLUSIVE DISEASE [None]
